FAERS Safety Report 7943210-9 (Version None)
Quarter: 2011Q4

REPORT INFORMATION
  Report Type: 
  Country: None (occurrence: None)
  Receive Date: 20111128
  Receipt Date: 20110809
  Transmission Date: 20120403
  Serious: Yes (Hospitalization, Other)
  Sender: FDA-Public Use
  Company Number: PHHO2011JP13748

PATIENT
  Sex: Male
  Weight: 62 kg

DRUGS (5)
  1. BLINDED AIN457 [Suspect]
     Indication: PSORIASIS
     Dosage: NO TREATMENT
     Route: 058
  2. NEORAL [Suspect]
     Dosage: 250 MG, UNK
     Route: 048
     Dates: start: 20110809, end: 20110822
  3. BLINDED PLACEBO [Suspect]
     Indication: PSORIASIS
     Dosage: NO TREATMENT
     Route: 058
  4. NEORAL [Suspect]
     Dosage: 200 MG, UNK
     Route: 048
     Dates: start: 20110823
  5. BLINDED NO TREATMENT RECEIVED [Suspect]
     Indication: PSORIASIS
     Dosage: NO TREATMENT
     Route: 058

REACTIONS (5)
  - BILE DUCT STONE [None]
  - PUSTULAR PSORIASIS [None]
  - PSORIASIS [None]
  - CHOLANGITIS ACUTE [None]
  - CHOLECYSTITIS ACUTE [None]
